FAERS Safety Report 11147839 (Version 1)
Quarter: 2015Q2

REPORT INFORMATION
  Report Type: Spontaneous
  Country: US (occurrence: None)
  Receive Date: 20150528
  Receipt Date: 20150528
  Transmission Date: 20150821
  Serious: Yes (Hospitalization)
  Sender: FDA-Public Use
  Company Number: None

PATIENT
  Age: 76 Year
  Sex: Male
  Weight: 93.9 kg

DRUGS (1)
  1. NAPROXEN. [Suspect]
     Active Substance: NAPROXEN
     Indication: PAIN
     Dates: start: 20150120, end: 20150127

REACTIONS (3)
  - Blood creatinine increased [None]
  - Blood urea increased [None]
  - Hyperkalaemia [None]

NARRATIVE: CASE EVENT DATE: 20150127
